FAERS Safety Report 15015514 (Version 8)
Quarter: 2025Q1

REPORT INFORMATION
  Report Type: Report from Study
  Country: DE (occurrence: DE)
  Receive Date: 20180615
  Receipt Date: 20250331
  Transmission Date: 20250409
  Serious: Yes (Hospitalization, Other)
  Sender: MYLAN
  Company Number: DE-ABBVIE-17K-062-1974136-00

PATIENT
  Age: 82 Year
  Sex: Female
  Weight: 56 kg

DRUGS (46)
  1. PANTOPRAZOLE [Suspect]
     Active Substance: PANTOPRAZOLE
     Indication: Product used for unknown indication
     Dosage: 20 MG, QD
  2. PANTOPRAZOLE [Suspect]
     Active Substance: PANTOPRAZOLE
     Dosage: 1 DOSAGE FORM, QD
  3. LACTULOSE [Suspect]
     Active Substance: LACTULOSE
     Indication: Product used for unknown indication
  4. SIMVASTATIN [Suspect]
     Active Substance: SIMVASTATIN
     Indication: Product used for unknown indication
  5. TORSEMIDE [Suspect]
     Active Substance: TORSEMIDE
     Indication: Product used for unknown indication
     Dosage: 5 MG, QD
  6. TORSEMIDE [Suspect]
     Active Substance: TORSEMIDE
     Dosage: 45 MG, QD
     Dates: start: 20170124, end: 20170124
  7. TORSEMIDE [Suspect]
     Active Substance: TORSEMIDE
     Dosage: 15 MILLIGRAM, QD
  8. CLOPIDOGREL [Suspect]
     Active Substance: CLOPIDOGREL BISULFATE
     Indication: Product used for unknown indication
  9. AMIODARONE [Suspect]
     Active Substance: AMIODARONE
     Indication: Product used for unknown indication
  10. METOPROLOL [Suspect]
     Active Substance: METOPROLOL
     Indication: Product used for unknown indication
  11. VALSARTAN [Suspect]
     Active Substance: VALSARTAN
     Indication: Product used for unknown indication
  12. FENTANYL [Suspect]
     Active Substance: FENTANYL
     Indication: Product used for unknown indication
  13. DICLOFENAC [Suspect]
     Active Substance: DICLOFENAC
     Indication: Product used for unknown indication
     Dosage: 2 DOSAGE FORM, QD
     Dates: start: 201610
  14. DICLOFENAC [Suspect]
     Active Substance: DICLOFENAC
  15. PREDNISOLONE [Suspect]
     Active Substance: PREDNISOLONE
     Indication: Product used for unknown indication
  16. ASPIRIN [Suspect]
     Active Substance: ASPIRIN
     Indication: Product used for unknown indication
  17. HYDROCHLOROTHIAZIDE\LOSARTAN [Suspect]
     Active Substance: HYDROCHLOROTHIAZIDE\LOSARTAN
     Indication: Product used for unknown indication
     Dosage: 1 DOSAGE FORM, QD (100/25 MG)
     Dates: start: 2016
  18. EDOXABAN TOSYLATE [Suspect]
     Active Substance: EDOXABAN TOSYLATE
     Indication: Atrial fibrillation
     Dosage: 30 MG, QD (START DATE:30-SEP-2016)
  19. BISOPROLOL FUMARATE [Suspect]
     Active Substance: BISOPROLOL FUMARATE
     Indication: Product used for unknown indication
     Dosage: 0.5 MG, QD
     Dates: start: 2016
  20. BISOPROLOL FUMARATE [Suspect]
     Active Substance: BISOPROLOL FUMARATE
     Dosage: 5 MG, QD
     Dates: start: 2016
  21. XIPAMIDE [Suspect]
     Active Substance: XIPAMIDE
     Indication: Product used for unknown indication
  22. TROSPIUM CHLORIDE [Suspect]
     Active Substance: TROSPIUM CHLORIDE
     Indication: Product used for unknown indication
     Dosage: 15 MG, QD
  23. TROSPIUM CHLORIDE [Suspect]
     Active Substance: TROSPIUM CHLORIDE
     Dosage: 45 MG, QD
     Dates: start: 20170124, end: 20170124
  24. HUMIRA [Suspect]
     Active Substance: ADALIMUMAB
     Indication: Rheumatoid arthritis
     Dosage: UNK, Q2W
     Dates: start: 20120411, end: 20160927
  25. HUMIRA [Suspect]
     Active Substance: ADALIMUMAB
     Dosage: UNK UNK, QW
     Dates: start: 20120111, end: 20160927
  26. HUMIRA [Suspect]
     Active Substance: ADALIMUMAB
     Dosage: 1 DOSAGE FORM, Q2W
     Dates: start: 20120111, end: 20160927
  27. HUMIRA [Suspect]
     Active Substance: ADALIMUMAB
     Dosage: 1 DOSAGE FORM, Q2W
     Dates: start: 20161115
  28. HUMIRA [Suspect]
     Active Substance: ADALIMUMAB
     Dosage: 2 DOSAGE FORM, QW
     Dates: start: 20161115
  29. CHOLECALCIFEROL [Suspect]
     Active Substance: CHOLECALCIFEROL
     Indication: Product used for unknown indication
     Dosage: 20000 IU, QW
  30. MOVICOL [Suspect]
     Active Substance: POLYETHYLENE GLYCOL 3350\POTASSIUM CHLORIDE\SODIUM BICARBONATE\SODIUM CHLORIDE
     Indication: Product used for unknown indication
  31. FUROSEMIDE\SPIRONOLACTONE [Suspect]
     Active Substance: FUROSEMIDE\SPIRONOLACTONE
     Indication: Product used for unknown indication
     Dosage: 1 DOSAGE FORM, QD
     Dates: start: 201610, end: 201610
  32. FENTANYL TRANSDERMAL SYSTEM [Suspect]
     Active Substance: FENTANYL
     Indication: Product used for unknown indication
     Dosage: 75 ?G, QH (PLASTER CHANGE EVERY 3 DAYS)
  33. DICLOFENAC [Suspect]
     Active Substance: DICLOFENAC
     Indication: Product used for unknown indication
     Dosage: 2 DOSAGE FORM, QD
     Dates: start: 201610, end: 201610
  34. TROSPIUM CHLORIDE [Suspect]
     Active Substance: TROSPIUM CHLORIDE
     Indication: Product used for unknown indication
  35. TROSPIUM CHLORIDE [Suspect]
     Active Substance: TROSPIUM CHLORIDE
     Dosage: 15 MILLIGRAM, QD
     Dates: start: 20170124
  36. CLOPIDOGREL BISULFATE [Suspect]
     Active Substance: CLOPIDOGREL BISULFATE
     Indication: Product used for unknown indication
  37. SODIUM CHLORIDE [Concomitant]
     Active Substance: SODIUM CHLORIDE
     Indication: Product used for unknown indication
     Dosage: 3 DOSAGE FORM, QD
  38. FOLIC ACID [Concomitant]
     Active Substance: FOLIC ACID
     Indication: Product used for unknown indication
  39. LEVOSIMENDAN [Concomitant]
     Active Substance: LEVOSIMENDAN
     Indication: Product used for unknown indication
  40. TORSEMIDE [Concomitant]
     Active Substance: TORSEMIDE
     Indication: Product used for unknown indication
     Dosage: DAILY DOSE: 5 MG MILLGRAM(S) EVERY DAYS
  41. TORSEMIDE [Concomitant]
     Active Substance: TORSEMIDE
     Dosage: 1 DOSAGE FORM
  42. CORDAREX [Concomitant]
     Active Substance: AMIODARONE
     Indication: Product used for unknown indication
     Dosage: DAILY DOSE: 200 MG MILLGRAM(S) EVERY DAYS
  43. ENOXAPARIN [Concomitant]
     Active Substance: ENOXAPARIN
     Indication: Product used for unknown indication
     Dosage: DAILY DOSE: 0.6 MG MILLGRAM(S) EVERY DAYS
  44. NADROPARIN CALCIUM [Concomitant]
     Active Substance: NADROPARIN CALCIUM
     Indication: Product used for unknown indication
     Dosage: DAILY DOSE: 5700 IU INTERNATIONAL UNIT(S) EVERY DAYS
  45. Riopan [Concomitant]
     Indication: Product used for unknown indication
     Dosage: 4800 MILLIGRAM, QD, DAILY DOSE: 4800 MG MILLGRAM(S) EVERY DAYS
  46. Riopan [Concomitant]
     Dosage: 1600 MG, QD

REACTIONS (54)
  - Cardiogenic shock [Unknown]
  - Groin pain [Unknown]
  - Urinary tract infection [Unknown]
  - Diverticulum intestinal [Unknown]
  - Haematuria [Unknown]
  - Femoral hernia incarcerated [Recovered/Resolved]
  - Wound infection pseudomonas [Recovering/Resolving]
  - Lymphatic fistula [Recovered/Resolved]
  - Seroma [Unknown]
  - Eructation [Unknown]
  - Pulmonary hypertension [Unknown]
  - Hiatus hernia [Unknown]
  - Inflammatory marker increased [Recovered/Resolved]
  - Faecaloma [Unknown]
  - Left ventricular dysfunction [Recovered/Resolved]
  - Hepatic cyst [Unknown]
  - Mitral valve incompetence [Unknown]
  - Gait disturbance [Unknown]
  - Dyspnoea [Unknown]
  - Coronary artery disease [Unknown]
  - Gastrointestinal haemorrhage [Recovered/Resolved]
  - Cardiovascular disorder [Unknown]
  - Acute kidney injury [Unknown]
  - Hyperkalaemia [Unknown]
  - Aplastic anaemia [Unknown]
  - Postoperative wound infection [Recovered/Resolved]
  - Joint dislocation [Recovered/Resolved]
  - Urinary retention [Unknown]
  - Wound dehiscence [Recovered/Resolved]
  - Osteopenia [Recovered/Resolved]
  - Arterial haemorrhage [Recovered/Resolved]
  - Pancreatic steatosis [Unknown]
  - Escherichia infection [Unknown]
  - Haemarthrosis [Unknown]
  - Tachyarrhythmia [Unknown]
  - Tricuspid valve incompetence [Unknown]
  - Myelodysplastic syndrome [Unknown]
  - Aortic valve stenosis [Unknown]
  - Hyponatraemia [Unknown]
  - Impaired healing [Recovered/Resolved]
  - Aortic arteriosclerosis [Unknown]
  - General physical health deterioration [Unknown]
  - Decreased appetite [Unknown]
  - Dyspepsia [Unknown]
  - Anuria [Recovered/Resolved]
  - Myocardial infarction [Recovered/Resolved]
  - Anaemia [Recovered/Resolved]
  - Abdominal discomfort [Unknown]
  - Oedema peripheral [Unknown]
  - Arthralgia [Unknown]
  - Vomiting [Unknown]
  - Peripheral swelling [Unknown]
  - Syncope [Recovered/Resolved]
  - Fall [Recovered/Resolved]

NARRATIVE: CASE EVENT DATE: 20160101
